FAERS Safety Report 5206021-3 (Version None)
Quarter: 2007Q1

REPORT INFORMATION
  Report Type: 
  Country: None (occurrence: None)
  Receive Date: 20070111
  Receipt Date: 20070104
  Transmission Date: 20070707
  Serious: Yes (Hospitalization, Other)
  Sender: FDA-Public Use
  Company Number: GB-ABBOTT-07P-167-0355068-00

PATIENT
  Age: 23 Year
  Sex: Female
  Weight: 67 kg

DRUGS (4)
  1. CLARITHROMYCIN [Suspect]
     Indication: TONSILLITIS
     Dates: start: 20060824, end: 20060825
  2. LAMOTRIGINE [Interacting]
     Indication: DRUG USE FOR UNKNOWN INDICATION
     Route: 048
     Dates: start: 20020101
  3. IBUPROFEN [Concomitant]
     Indication: DRUG USE FOR UNKNOWN INDICATION
  4. NORETHINDRONE ACETATE [Concomitant]
     Indication: DRUG USE FOR UNKNOWN INDICATION

REACTIONS (3)
  - CONVULSION [None]
  - DRUG INTERACTION [None]
  - UPPER RESPIRATORY TRACT INFECTION [None]
